FAERS Safety Report 9158561 (Version 2)
Quarter: 2013Q2

REPORT INFORMATION
  Report Type: Spontaneous
  Country: CL (occurrence: CL)
  Receive Date: 20130312
  Receipt Date: 20130409
  Transmission Date: 20140414
  Serious: Yes (Other)
  Sender: FDA-Public Use
  Company Number: CL-PFIZER INC-2013079002

PATIENT
  Age: 60 Year
  Sex: Female

DRUGS (3)
  1. XALATAN [Suspect]
     Indication: GLAUCOMA
     Dosage: 1 GTT, 1X/DAY
     Dates: start: 2008
  2. BRIMOPRESS [Concomitant]
     Dosage: UNK
     Dates: start: 201105
  3. TIOF PLUS [Concomitant]
     Indication: OCULAR HYPERTENSION

REACTIONS (4)
  - Retinal detachment [Not Recovered/Not Resolved]
  - Visual acuity reduced [Not Recovered/Not Resolved]
  - Blindness unilateral [Unknown]
  - Intraocular pressure increased [Unknown]
